FAERS Safety Report 7641813-2 (Version None)
Quarter: 2011Q3

REPORT INFORMATION
  Report Type: 
  Country: None (occurrence: None)
  Receive Date: 20110728
  Receipt Date: 20110720
  Transmission Date: 20111222
  Serious: Yes (Hospitalization)
  Sender: FDA-Public Use
  Company Number: JP-ROCHE-779308

PATIENT
  Sex: Female
  Weight: 60 kg

DRUGS (11)
  1. RABEPRAZOLE SODIUM [Concomitant]
     Route: 048
     Dates: start: 20020101
  2. FOLIC ACID [Concomitant]
     Route: 048
     Dates: start: 20020101
  3. RIMATIL [Concomitant]
     Indication: RHEUMATOID ARTHRITIS
     Route: 048
     Dates: start: 20020101, end: 20020101
  4. CLINORIL [Concomitant]
     Route: 048
     Dates: start: 20020101
  5. METHOTREXATE [Concomitant]
     Route: 048
     Dates: start: 20020101
  6. PREDNISOLONE [Concomitant]
     Route: 048
     Dates: start: 20020101
  7. RIMATIL [Concomitant]
     Route: 048
     Dates: start: 20020101
  8. ROCEPHIN [Suspect]
     Indication: CHOLECYSTITIS ACUTE
     Route: 042
     Dates: start: 20110519, end: 20110525
  9. ADEFURONIC [Concomitant]
     Route: 048
     Dates: start: 20020101
  10. FOSAMAX [Concomitant]
     Dosage: DRUG NAME REPORTED AS FOSAMAC 5MG(ALENDRONATE SODIUM HYDRATE)
     Route: 048
     Dates: start: 20020101
  11. ACTEMRA [Suspect]
     Indication: RHEUMATOID ARTHRITIS
     Dosage: INDICATION:RHEUMATOID ARTHRITIS(STAGEIV,CLASSII)
     Route: 041
     Dates: start: 20100707, end: 20110516

REACTIONS (2)
  - CHOLECYSTITIS ACUTE [None]
  - WHITE BLOOD CELL COUNT DECREASED [None]
